FAERS Safety Report 10583791 (Version 1)
Quarter: 2014Q4

REPORT INFORMATION
  Report Type: Spontaneous
  Country: GB (occurrence: None)
  Receive Date: 20141112
  Receipt Date: 20141112
  Transmission Date: 20150529
  Serious: Yes (Life-Threatening)
  Sender: FDA-Public Use
  Company Number: 201411IM007407

PATIENT
  Age: 66 Year
  Sex: Male
  Weight: 100 kg

DRUGS (7)
  1. LANSOPRAZOLE. [Suspect]
     Active Substance: LANSOPRAZOLE
  2. ASPIRIN. [Concomitant]
     Active Substance: ASPIRIN
  3. BISOPROLOL [Suspect]
     Active Substance: BISOPROLOL
  4. CYCLIZINE [Concomitant]
     Active Substance: CYCLIZINE
  5. FUROSEMIDE. [Concomitant]
     Active Substance: FUROSEMIDE
  6. ESBRIET [Suspect]
     Active Substance: PIRFENIDONE
     Indication: IDIOPATHIC PULMONARY FIBROSIS
     Route: 048
     Dates: start: 20140922, end: 20140928
  7. SIMVASTATIN. [Suspect]
     Active Substance: SIMVASTATIN

REACTIONS (3)
  - Suicide attempt [None]
  - Loss of consciousness [None]
  - Asphyxia [None]

NARRATIVE: CASE EVENT DATE: 20141004
